FAERS Safety Report 10182714 (Version 1)
Quarter: 2014Q2

REPORT INFORMATION
  Report Type: Spontaneous
  Country: US (occurrence: None)
  Receive Date: 20140425
  Receipt Date: 20140425
  Transmission Date: 20141212
  Serious: No
  Sender: FDA-Public Use
  Company Number: 1305164

PATIENT
  Age: 63 Year
  Sex: Male

DRUGS (3)
  1. ZELBORAF [Suspect]
     Indication: MALIGNANT MELANOMA
     Route: 048
     Dates: start: 20131005
  2. FUROSEMIDE (FUROSEMIDE) [Concomitant]
  3. PROCHLORPERAZINE (PROCHLORPERAZINE) [Concomitant]

REACTIONS (3)
  - Rash [None]
  - Arthralgia [None]
  - Pain in extremity [None]
